FAERS Safety Report 5333318-9 (Version None)
Quarter: 2007Q2

REPORT INFORMATION
  Report Type: 
  Country: None (occurrence: None)
  Receive Date: 20070524
  Receipt Date: 20070514
  Transmission Date: 20071010
  Serious: Yes (Life-Threatening)
  Sender: FDA-Public Use
  Company Number: BR-BAXTER-2007BH004562

PATIENT
  Age: 13 Year
  Sex: Male
  Weight: 42 kg

DRUGS (6)
  1. FORANE [Suspect]
     Indication: ANAESTHESIA
     Route: 055
  2. FORANE [Suspect]
     Route: 055
  3. FENTANYL [Concomitant]
     Indication: ANAESTHESIA
     Route: 042
  4. MIDAZOLAM HCL [Concomitant]
     Indication: ANAESTHESIA
     Route: 042
  5. PROPOFOL [Concomitant]
     Indication: ANAESTHESIA
     Route: 042
  6. ATRACURIUM BESYLATE [Concomitant]
     Indication: ANAESTHESIA
     Route: 042

REACTIONS (2)
  - HYPOTENSION [None]
  - SINUS TACHYCARDIA [None]
